FAERS Safety Report 5793227-8 (Version None)
Quarter: 2008Q2

REPORT INFORMATION
  Report Type: 
  Country: None (occurrence: None)
  Receive Date: 20080627
  Receipt Date: 20080620
  Transmission Date: 20081010
  Serious: Yes (Hospitalization)
  Sender: FDA-Public Use
  Company Number: FR-ASTRAZENECA-2008CG00974

PATIENT
  Age: 25149 Day
  Sex: Male

DRUGS (6)
  1. NEXIUM [Suspect]
     Route: 048
     Dates: end: 20080301
  2. RISPERDAL LP [Suspect]
     Dosage: 50 MG EVERY 15 DAYS
     Route: 030
  3. SOLIAN [Suspect]
  4. ORAP [Suspect]
     Route: 048
  5. TAHOR [Suspect]
     Route: 048
  6. IXEL [Suspect]
     Route: 048

REACTIONS (3)
  - ASPIRATION [None]
  - LUNG DISORDER [None]
  - SUBILEUS [None]
